FAERS Safety Report 16688640 (Version 27)
Quarter: 2025Q2

REPORT INFORMATION
  Report Type: Report from Study
  Country: US (occurrence: US)
  Receive Date: 20190809
  Receipt Date: 20250502
  Transmission Date: 20250716
  Serious: Yes (Hospitalization, Other)
  Sender: TAKEDA
  Company Number: US-SHIRE-US201920361

PATIENT
  Sex: Female

DRUGS (6)
  1. HUMAN IMMUNOGLOBULIN G [Suspect]
     Active Substance: HUMAN IMMUNOGLOBULIN G
     Indication: Immunodeficiency common variable
  2. HUMAN IMMUNOGLOBULIN G [Suspect]
     Active Substance: HUMAN IMMUNOGLOBULIN G
     Indication: Primary immunodeficiency syndrome
  3. HUMAN IMMUNOGLOBULIN G [Suspect]
     Active Substance: HUMAN IMMUNOGLOBULIN G
  4. HUMAN IMMUNOGLOBULIN G [Suspect]
     Active Substance: HUMAN IMMUNOGLOBULIN G
     Dosage: 11 GRAM, 1/WEEK
  5. HUMAN IMMUNOGLOBULIN G [Suspect]
     Active Substance: HUMAN IMMUNOGLOBULIN G
  6. MODERNA COVID-19 VACCINE [Suspect]
     Active Substance: ELASOMERAN
     Indication: COVID-19 immunisation

REACTIONS (45)
  - Laryngitis [Unknown]
  - Parainfluenzae virus infection [Unknown]
  - Sepsis [Unknown]
  - Intestinal obstruction [Unknown]
  - Skin cancer [Unknown]
  - Umbilical hernia [Unknown]
  - Impaired gastric emptying [Unknown]
  - Gallbladder disorder [Recovered/Resolved]
  - Appendix disorder [Unknown]
  - Periorbital cellulitis [Unknown]
  - Scar [Unknown]
  - Injury associated with device [Unknown]
  - Accidental exposure to product [Unknown]
  - Pulmonary mass [Unknown]
  - Skin sensitisation [Unknown]
  - Subcutaneous drug absorption impaired [Unknown]
  - Rash [Recovered/Resolved]
  - Infusion site bruising [Unknown]
  - Infusion site swelling [Unknown]
  - Infusion site pain [Unknown]
  - Pruritus [Not Recovered/Not Resolved]
  - Lung disorder [Unknown]
  - Viral infection [Unknown]
  - Fractured coccyx [Unknown]
  - Needle issue [Unknown]
  - Multiple allergies [Unknown]
  - Nasopharyngitis [Unknown]
  - Fall [Unknown]
  - Weight decreased [Unknown]
  - Allergic reaction to excipient [Unknown]
  - Hypobarism [Unknown]
  - Fibromyalgia [Unknown]
  - Upper respiratory tract infection [Unknown]
  - Vaccination complication [Unknown]
  - Gastrointestinal disorder [Not Recovered/Not Resolved]
  - Spinal column injury [Unknown]
  - COVID-19 [Unknown]
  - Scabies [Unknown]
  - Inappropriate schedule of product administration [Unknown]
  - Dermatitis allergic [Unknown]
  - Feeling abnormal [Unknown]
  - Pain [Unknown]
  - Arthralgia [Unknown]
  - Abdominal pain [Unknown]
  - Fatigue [Not Recovered/Not Resolved]

NARRATIVE: CASE EVENT DATE: 20190101
